FAERS Safety Report 7969039-3 (Version None)
Quarter: 2011Q4

REPORT INFORMATION
  Report Type: 
  Country: None (occurrence: None)
  Receive Date: 20111208
  Receipt Date: 20111124
  Transmission Date: 20120403
  Serious: Yes (Other)
  Sender: FDA-Public Use
  Company Number: 2011120001

PATIENT
  Age: 85 Year
  Sex: Female
  Weight: 70 kg

DRUGS (10)
  1. OXYCODONE HCL [Suspect]
     Dosage: ADMINISTRATION OF 10 MG WAS A MISTAKE, ONLY 6X 1MG/DAY WAS PRESCRIBED (10 MG, 6 IN 1 D), ORAL
     Route: 048
     Dates: start: 20111011, end: 20111013
  2. SINTROM [Concomitant]
  3. TORSEMIDE [Suspect]
     Dosage: 10 MG (10 MG, 1 IN 1 D), ORAL
     Route: 048
     Dates: end: 20111013
  4. CIPRALEX (ESCITALOPRAM OXALATE) [Concomitant]
  5. ALDACTONE [Suspect]
     Dosage: 25 MG (25 MG, 1 IN 1 D), ORAL
     Route: 048
     Dates: end: 20111012
  6. DIGOXIN [Concomitant]
  7. SEROQUEL [Concomitant]
  8. BACTRIM [Concomitant]
  9. METOPROLOL SUCCINATE [Suspect]
     Dosage: 25 MG (25 MG, 1 IN 1 D), ORAL
     Route: 048
     Dates: end: 20111014
  10. PERINDOPRIL ERBUMINE [Suspect]
     Dosage: 2.5 MG (2.5 MG, 1 IN 1 D), ORAL
     Route: 048
     Dates: end: 20111013

REACTIONS (11)
  - HALLUCINATION [None]
  - CONFUSIONAL STATE [None]
  - ACCIDENTAL OVERDOSE [None]
  - AGITATION [None]
  - FALL [None]
  - HEAD INJURY [None]
  - HAEMORRHAGE INTRACRANIAL [None]
  - HYPOTENSION [None]
  - RENAL FAILURE ACUTE [None]
  - MIOSIS [None]
  - RENAL IMPAIRMENT [None]
